FAERS Safety Report 7627582-0 (Version None)
Quarter: 2011Q3

REPORT INFORMATION
  Report Type: 
  Country: None (occurrence: None)
  Receive Date: 20110721
  Receipt Date: 20110713
  Transmission Date: 20111222
  Serious: Yes (Hospitalization)
  Sender: FDA-Public Use
  Company Number: US-US-EMD SERONO, INC.-7070577

PATIENT
  Sex: Female

DRUGS (3)
  1. REBIF [Suspect]
     Route: 058
  2. UNSPECIFIED MEDICATION [Concomitant]
     Indication: HYPERTENSION
  3. REBIF [Suspect]
     Indication: MULTIPLE SCLEROSIS
     Route: 058
     Dates: start: 20060123

REACTIONS (4)
  - LACERATION [None]
  - BLOOD PRESSURE FLUCTUATION [None]
  - BALANCE DISORDER [None]
  - FALL [None]
